FAERS Safety Report 24128370 (Version 1)
Quarter: 2024Q3

REPORT INFORMATION
  Report Type: Spontaneous
  Country: US (occurrence: None)
  Receive Date: 20240722
  Receipt Date: 20240722
  Transmission Date: 20241017
  Serious: No
  Sender: Public
  Company Number: None

PATIENT
  Age: 54 Year
  Sex: Male
  Weight: 69.75 kg

DRUGS (6)
  1. KIRKLAND SIGNATURE ALLER TEC ALLERGY [Suspect]
     Active Substance: CETIRIZINE HYDROCHLORIDE
     Indication: Seasonal allergy
     Dosage: OTHER QUANTITY : 1 TABLET(S);?FREQUENCY : DAILY;?
     Route: 048
  2. KIRKLAND SIGNATURE ALLER TEC ALLERGY [Suspect]
     Active Substance: CETIRIZINE HYDROCHLORIDE
     Indication: Seasonal allergy
  3. KIRKLAND SIGNATURE ALLER TEC ALLERGY [Suspect]
     Active Substance: CETIRIZINE HYDROCHLORIDE
     Indication: Mycotic allergy
  4. daily multivitami [Concomitant]
  5. OMEGA 3 [Concomitant]
     Active Substance: CAPSAICIN
  6. magnesium cirtrate [Concomitant]

REACTIONS (8)
  - Pruritus [None]
  - Pruritus [None]
  - Pruritus [None]
  - Eye pruritus [None]
  - Urticaria [None]
  - Sleep disorder [None]
  - Withdrawal syndrome [None]
  - Food allergy [None]

NARRATIVE: CASE EVENT DATE: 20240715
